FAERS Safety Report 13929764 (Version 2)
Quarter: 2017Q3

REPORT INFORMATION
  Report Type: Spontaneous
  Country: US (occurrence: US)
  Receive Date: 20170901
  Receipt Date: 20170925
  Transmission Date: 20171127
  Serious: Yes (Hospitalization, Other)
  Sender: FDA-Public Use
  Company Number: US-DSJP-DSU-2017-133777

PATIENT

DRUGS (1)
  1. BENICAR [Suspect]
     Active Substance: OLMESARTAN MEDOXOMIL
     Indication: PRODUCT USED FOR UNKNOWN INDICATION
     Dosage: UNK
     Dates: start: 2006

REACTIONS (9)
  - Diverticulum [Unknown]
  - Diarrhoea [Unknown]
  - Cholecystectomy [Unknown]
  - Vomiting [Unknown]
  - Weight decreased [Unknown]
  - Dehydration [Unknown]
  - Hypokalaemia [Unknown]
  - Abdominal pain [Unknown]
  - Nausea [Unknown]
